FAERS Safety Report 17772509 (Version 3)
Quarter: 2020Q4

REPORT INFORMATION
  Report Type: Spontaneous
  Country: US (occurrence: US)
  Receive Date: 20200512
  Receipt Date: 20201218
  Transmission Date: 20210113
  Serious: Yes (Other)
  Sender: FDA-Public Use
  Company Number: US-GILEAD-2020-0466293

PATIENT
  Sex: Male

DRUGS (3)
  1. ATRIPLA [Suspect]
     Active Substance: EFAVIRENZ\EMTRICITABINE\TENOFOVIR DISOPROXIL FUMARATE
     Indication: HIV INFECTION
     Dosage: UNK
     Route: 065
     Dates: start: 2010
  2. ATRIPLA [Suspect]
     Active Substance: EFAVIRENZ\EMTRICITABINE\TENOFOVIR DISOPROXIL FUMARATE
     Dosage: UNK
     Route: 065
     Dates: start: 200906, end: 2017
  3. VIREAD [Suspect]
     Active Substance: TENOFOVIR DISOPROXIL FUMARATE
     Indication: HIV INFECTION
     Dosage: UNK
     Route: 048
     Dates: start: 200906

REACTIONS (10)
  - Osteonecrosis [Unknown]
  - Chronic kidney disease [Unknown]
  - Multiple fractures [Unknown]
  - Tooth loss [Not Recovered/Not Resolved]
  - Foot fracture [Not Recovered/Not Resolved]
  - Bone density decreased [Unknown]
  - Renal injury [Unknown]
  - Renal failure [Unknown]
  - Skeletal injury [Unknown]
  - Bone loss [Unknown]

NARRATIVE: CASE EVENT DATE: 2017
